FAERS Safety Report 24136487 (Version 2)
Quarter: 2024Q3

REPORT INFORMATION
  Report Type: Spontaneous
  Country: CA (occurrence: CA)
  Receive Date: 20240725
  Receipt Date: 20240919
  Transmission Date: 20241017
  Serious: Yes (Hospitalization, Other)
  Sender: PFIZER
  Company Number: CA-PFIZER INC-202200520127

PATIENT
  Age: 68 Year
  Sex: Female
  Weight: 75 kg

DRUGS (13)
  1. RUXIENCE [Suspect]
     Active Substance: RITUXIMAB-PVVR
     Indication: Granulomatosis with polyangiitis
     Dosage: 675 MG, WEEKLY, DOSE FOR 4 WEEKS (375 MG/M2 X 4)
     Route: 042
     Dates: start: 20220401, end: 20220420
  2. RUXIENCE [Suspect]
     Active Substance: RITUXIMAB-PVVR
     Dosage: 675 MG WEEKLY DOSE FOR 4 WEEKS
     Route: 042
     Dates: start: 20220414
  3. RUXIENCE [Suspect]
     Active Substance: RITUXIMAB-PVVR
     Dosage: 675 MG WEEKLY DOSE FOR 4 WEEKS
     Route: 042
     Dates: start: 20220414
  4. RUXIENCE [Suspect]
     Active Substance: RITUXIMAB-PVVR
     Dosage: 675 MG WEEKLY DOSE FOR 4 WEEKS
     Route: 042
     Dates: start: 20220420
  5. RUXIENCE [Suspect]
     Active Substance: RITUXIMAB-PVVR
     Dosage: 675 MG WEEKLY DOSE FOR 4 WEEKS
     Route: 042
     Dates: start: 20220420
  6. RUXIENCE [Suspect]
     Active Substance: RITUXIMAB-PVVR
     Dosage: 1000 MG, SINGLE 1 DOSE (1 G )
     Route: 042
     Dates: start: 20221205, end: 20221205
  7. RUXIENCE [Suspect]
     Active Substance: RITUXIMAB-PVVR
     Dosage: 1 G
     Route: 042
     Dates: start: 202406
  8. ACETAMINOPHEN [Concomitant]
     Active Substance: ACETAMINOPHEN
     Indication: Premedication
     Dosage: 1000 MG
     Dates: start: 20221205, end: 20221205
  9. AMLODIPINE [Concomitant]
     Active Substance: AMLODIPINE BESYLATE
     Dosage: UNK
  10. AZATHIOPRINE [Concomitant]
     Active Substance: AZATHIOPRINE
     Dosage: 100 MG
     Dates: start: 202404, end: 202406
  11. CYCLOPHOSPHAMIDE [Concomitant]
     Active Substance: CYCLOPHOSPHAMIDE
     Dosage: UNK, POX 4 MONTHS (RE-INDUCTION)
     Dates: start: 202204, end: 202208
  12. CYCLOPHOSPHAMIDE [Concomitant]
     Active Substance: CYCLOPHOSPHAMIDE
     Dosage: UNK, POX 6 MONTHS (RE-INDUCTION, UPWARDS OF 30 G)
     Dates: start: 202307, end: 202404
  13. PREDNISONE [Concomitant]
     Active Substance: PREDNISONE
     Dosage: 1 DF
     Route: 065

REACTIONS (10)
  - COVID-19 [Recovered/Resolved]
  - COVID-19 [Not Recovered/Not Resolved]
  - Condition aggravated [Not Recovered/Not Resolved]
  - Infection [Not Recovered/Not Resolved]
  - Nausea [Not Recovered/Not Resolved]
  - Secondary immunodeficiency [Unknown]
  - Vasculitis [Not Recovered/Not Resolved]
  - Off label use [Unknown]
  - Off label use [Unknown]
  - Intentional product use issue [Unknown]

NARRATIVE: CASE EVENT DATE: 20220420
